FAERS Safety Report 21964255 (Version 1)
Quarter: 2023Q1

REPORT INFORMATION
  Report Type: Spontaneous
  Country: US (occurrence: None)
  Receive Date: 20230206
  Receipt Date: 20230206
  Transmission Date: 20230418
  Serious: Yes (Other)
  Sender: FDA-Public Use
  Company Number: None

PATIENT
  Age: 52 Year
  Sex: Male

DRUGS (2)
  1. GLATIRAMER ACETATE [Suspect]
     Active Substance: GLATIRAMER ACETATE
     Indication: Multiple sclerosis
     Dosage: FREQUENCY : 3 TIMES A WEEK;?
     Route: 058
     Dates: start: 20190227
  2. AMPYRA [Suspect]
     Active Substance: DALFAMPRIDINE

REACTIONS (1)
  - Trigeminal neuralgia [None]

NARRATIVE: CASE EVENT DATE: 20230128
